FAERS Safety Report 15550533 (Version 3)
Quarter: 2018Q4

REPORT INFORMATION
  Report Type: Spontaneous
  Country: US (occurrence: US)
  Receive Date: 20181025
  Receipt Date: 20181121
  Transmission Date: 20190205
  Serious: Yes (Other)
  Sender: FDA-Public Use
  Company Number: US-JNJFOC-20181028979

PATIENT
  Age: 56 Year
  Sex: Female
  Weight: 99.34 kg

DRUGS (5)
  1. SIMPONI [Suspect]
     Active Substance: GOLIMUMAB
     Indication: COLITIS ULCERATIVE
     Route: 058
     Dates: start: 201807
  2. SIMPONI [Suspect]
     Active Substance: GOLIMUMAB
     Indication: COLITIS ULCERATIVE
     Route: 058
     Dates: start: 201807
  3. LEVOTHYROXIN [Concomitant]
     Active Substance: LEVOTHYROXINE
     Indication: THYROID DISORDER
     Route: 065
     Dates: start: 2007
  4. SIMPONI [Suspect]
     Active Substance: GOLIMUMAB
     Indication: PROCTITIS
     Route: 058
     Dates: start: 201807
  5. SIMPONI [Suspect]
     Active Substance: GOLIMUMAB
     Indication: PROCTITIS
     Route: 058
     Dates: start: 201807

REACTIONS (7)
  - Accidental exposure to product [Unknown]
  - Arthropathy [Unknown]
  - Procedural pain [Not Recovered/Not Resolved]
  - Product use issue [Unknown]
  - Device malfunction [Unknown]
  - Off label use [Unknown]
  - Product dose omission [Unknown]

NARRATIVE: CASE EVENT DATE: 201807
